FAERS Safety Report 26028696 (Version 1)
Quarter: 2025Q4

REPORT INFORMATION
  Report Type: Spontaneous
  Country: US (occurrence: US)
  Receive Date: 20251111
  Receipt Date: 20251111
  Transmission Date: 20260117
  Serious: Yes (Hospitalization, Other)
  Sender: ORGANON
  Company Number: US-ORGANON-O2511USA000142

PATIENT
  Age: 64 Year
  Sex: Female

DRUGS (18)
  1. REMERON [Interacting]
     Active Substance: MIRTAZAPINE
     Dosage: UNK
  2. TRAZODONE [Suspect]
     Active Substance: TRAZODONE HYDROCHLORIDE
     Dosage: UNK
  3. INGREZZA [Suspect]
     Active Substance: VALBENAZINE DITOSYLATE
     Indication: Tardive dyskinesia
     Dosage: 60 MILLIGRAM, QD
     Dates: start: 20230130, end: 20230605
  4. INGREZZA [Suspect]
     Active Substance: VALBENAZINE DITOSYLATE
     Dosage: 80 MILLIGRAM, QD
     Dates: start: 20230606, end: 20240502
  5. INGREZZA [Suspect]
     Active Substance: VALBENAZINE DITOSYLATE
     Dosage: 40 MILLIGRAM, QD
     Dates: start: 20240726, end: 20240813
  6. INGREZZA [Suspect]
     Active Substance: VALBENAZINE DITOSYLATE
     Dosage: 80 MILLIGRAM, QD
     Dates: start: 20240814, end: 20250516
  7. INGREZZA [Suspect]
     Active Substance: VALBENAZINE DITOSYLATE
     Dosage: 40 MILLIGRAM, QD
     Dates: start: 20250517, end: 20250616
  8. INGREZZA [Suspect]
     Active Substance: VALBENAZINE DITOSYLATE
     Dosage: 80 MILLIGRAM, QD
     Dates: start: 20250623
  9. CYMBALTA [Suspect]
     Active Substance: DULOXETINE HYDROCHLORIDE
     Dosage: UNK
  10. AMLODIPINE [Concomitant]
     Active Substance: AMLODIPINE BESYLATE
  11. ATORVASTATIN [Concomitant]
     Active Substance: ATORVASTATIN
  12. BASAGLAR [Concomitant]
     Active Substance: INSULIN GLARGINE
  13. ESCITALOPRAM [Concomitant]
     Active Substance: ESCITALOPRAM OXALATE
  14. HUMALOG [Concomitant]
     Active Substance: INSULIN LISPRO
  15. LABETALOL [Concomitant]
     Active Substance: LABETALOL
  16. LANTUS [Concomitant]
     Active Substance: INSULIN GLARGINE
  17. LOVASTATIN [Concomitant]
     Active Substance: LOVASTATIN
  18. DULOXETINE [Concomitant]
     Active Substance: DULOXETINE

REACTIONS (4)
  - Arrhythmia [Unknown]
  - Drug interaction [Unknown]
  - Vomiting [Unknown]
  - Loss of consciousness [Unknown]
